FAERS Safety Report 24622737 (Version 1)
Quarter: 2024Q4

REPORT INFORMATION
  Report Type: Spontaneous
  Country: MX (occurrence: MX)
  Receive Date: 20241115
  Receipt Date: 20241115
  Transmission Date: 20250114
  Serious: Yes (Death)
  Sender: SERVIER
  Company Number: MX-SERVIER-S24014677

PATIENT

DRUGS (1)
  1. ONCASPAR [Suspect]
     Active Substance: PEGASPARGASE
     Indication: Acute lymphocytic leukaemia
     Dosage: HIGHER DOSE OF 5 ML
     Route: 030

REACTIONS (2)
  - Hepatic failure [Fatal]
  - Pancreatic enzymes increased [Unknown]
